FAERS Safety Report 15289528 (Version 1)
Quarter: 2018Q3

REPORT INFORMATION
  Report Type: Spontaneous
  Country: US (occurrence: US)
  Receive Date: 20180803
  Receipt Date: 20180803
  Transmission Date: 20181010
  Serious: Yes (Other)
  Sender: FDA-Public Use
  Company Number: None

PATIENT
  Age: 5 Year
  Sex: Male
  Weight: 20.25 kg

DRUGS (2)
  1. GUAIFENESIN. [Suspect]
     Active Substance: GUAIFENESIN
     Indication: RESPIRATORY TRACT INFECTION
     Dosage: ORAL, 0.5 TEASPOON
     Route: 048
     Dates: start: 20180521, end: 20180521
  2. FD+C RED NO. 40 [Suspect]
     Active Substance: FD+C RED NO. 40
     Dosage: ?          OTHER STRENGTH:HE TAKES 1/2 TEASP;QUANTITY:0.5 TEASPOON(S);?
     Route: 048
     Dates: start: 20180801, end: 20180801

REACTIONS (4)
  - Abnormal behaviour [None]
  - Screaming [None]
  - Aggression [None]
  - Reaction to azo-dyes [None]

NARRATIVE: CASE EVENT DATE: 20180801
